FAERS Safety Report 14804990 (Version 2)
Quarter: 2018Q2

REPORT INFORMATION
  Report Type: Spontaneous
  Country: FR (occurrence: FR)
  Receive Date: 20180425
  Receipt Date: 20180511
  Transmission Date: 20180711
  Serious: Yes (Other)
  Sender: FDA-Public Use
  Company Number: FR-AUROBINDO-AUR-APL-2018-020846

PATIENT
  Age: 96 Year
  Sex: Female
  Weight: 58 kg

DRUGS (4)
  1. HYDROXYZINE ARROW [Interacting]
     Active Substance: HYDROXYZINE HYDROCHLORIDE
     Indication: RASH
     Dosage: 12.5 MILLIGRAM, ONCE A DAY
     Route: 048
     Dates: start: 20171231, end: 20180103
  2. CETIRIZINE ARROW FILM-COATED TABLET 10 MG [Interacting]
     Active Substance: CETIRIZINE HYDROCHLORIDE
     Indication: RASH
     Dosage: 1 DOSAGE FORM, ONCE A DAY
     Route: 048
     Dates: start: 20171230, end: 20180105
  3. HYDROXYZINE ARROW FILM-COATED TABLET [Interacting]
     Active Substance: HYDROXYZINE HYDROCHLORIDE
     Indication: RASH
     Dosage: 1 DOSAGE FORM, ONCE A DAY
     Route: 048
     Dates: start: 20180101, end: 20180103
  4. IPRATROPIUM ARROW [Suspect]
     Active Substance: IPRATROPIUM
     Indication: ASTHMA
     Dosage: 0.5 MILLIGRAM, ONCE A DAY
     Route: 065
     Dates: start: 20171228, end: 20180105

REACTIONS (1)
  - Anticholinergic syndrome [Recovered/Resolved]

NARRATIVE: CASE EVENT DATE: 20180103
